FAERS Safety Report 11972645 (Version 1)
Quarter: 2016Q1

REPORT INFORMATION
  Report Type: Spontaneous
  Country: US (occurrence: US)
  Receive Date: 20160128
  Receipt Date: 20160128
  Transmission Date: 20160526
  Serious: No
  Sender: FDA-Public Use
  Company Number: US-MEDA-2016010107

PATIENT
  Age: 60 Year
  Sex: Male
  Weight: 104 kg

DRUGS (4)
  1. AZELASTINE HYDROCHLORIDE. [Suspect]
     Active Substance: AZELASTINE HYDROCHLORIDE
     Indication: RHINITIS ALLERGIC
     Dates: start: 201601
  2. LATANOPROST. [Concomitant]
     Active Substance: LATANOPROST
     Indication: OPEN ANGLE GLAUCOMA
  3. VENTOLIN HFA [Concomitant]
     Active Substance: ALBUTEROL SULFATE
     Indication: BRONCHITIS CHRONIC
  4. MISOPROSTOL. [Concomitant]
     Active Substance: MISOPROSTOL
     Indication: HYPERTENSION
     Route: 048
     Dates: start: 2013

REACTIONS (11)
  - Tinnitus [Unknown]
  - Nasal congestion [Not Recovered/Not Resolved]
  - Eye irritation [Not Recovered/Not Resolved]
  - Glossodynia [Not Recovered/Not Resolved]
  - Vitreous floaters [Unknown]
  - Dry mouth [Not Recovered/Not Resolved]
  - Dysphagia [Unknown]
  - Headache [Unknown]
  - Throat irritation [Not Recovered/Not Resolved]
  - Dizziness [Recovered/Resolved]
  - Wrong technique in product usage process [Recovered/Resolved]

NARRATIVE: CASE EVENT DATE: 201601
